FAERS Safety Report 16249621 (Version 1)
Quarter: 2019Q2

REPORT INFORMATION
  Report Type: Spontaneous
  Country: US (occurrence: US)
  Receive Date: 20190429
  Receipt Date: 20190429
  Transmission Date: 20190711
  Serious: Yes (Hospitalization, Other)
  Sender: FDA-Public Use
  Company Number: US-AMGEN-USASP2019065758

PATIENT
  Age: 50 Year
  Sex: Female

DRUGS (18)
  1. CEFUROXIME AXETIL. [Concomitant]
     Active Substance: CEFUROXIME AXETIL
     Dosage: 250 MILLIGRAM
  2. METOPROLOL TARTRATE. [Concomitant]
     Active Substance: METOPROLOL TARTRATE
     Dosage: 25 MILLIGRAM
  3. POTASSIUM [Concomitant]
     Active Substance: POTASSIUM
     Dosage: 20 MILLIEQUIVALENT
  4. PROMETHAZINE [Concomitant]
     Active Substance: PROMETHAZINE\PROMETHAZINE HYDROCHLORIDE
     Dosage: 25 MILLIGRAM
  5. TORSEMIDE. [Concomitant]
     Active Substance: TORSEMIDE
     Dosage: 20 MILLIGRAM
  6. RESTASIS [Concomitant]
     Active Substance: CYCLOSPORINE
     Dosage: UNK
  7. FLUCONAZOLE. [Concomitant]
     Active Substance: FLUCONAZOLE
     Dosage: 150 MILLIGRAM
  8. PANTOPRAZOLE [Concomitant]
     Active Substance: PANTOPRAZOLE
     Dosage: 40 MILLIGRAM
  9. VITAMIN D [ERGOCALCIFEROL] [Concomitant]
     Active Substance: ERGOCALCIFEROL
     Dosage: 50000 UNIT
  10. DESLORATADIN [Concomitant]
     Active Substance: DESLORATADINE
     Dosage: 5 MILLIGRAM
  11. GABAPENTIN. [Concomitant]
     Active Substance: GABAPENTIN
     Dosage: 300 MILLIGRAM
  12. SERTRALINE HCL [Concomitant]
     Active Substance: SERTRALINE HYDROCHLORIDE
     Dosage: 25 MILLIGRAM
  13. METOLAZONE. [Concomitant]
     Active Substance: METOLAZONE
     Dosage: 2.5 MILLIGRAM
  14. MUPIROCIN. [Concomitant]
     Active Substance: MUPIROCIN
     Dosage: UNK
  15. FUROSEMIDE. [Concomitant]
     Active Substance: FUROSEMIDE
     Dosage: 40 MILLIGRAM
  16. FENTANYL. [Concomitant]
     Active Substance: FENTANYL
     Dosage: 25 MICROGRAM/HR
  17. LEVOFLOXACIN. [Concomitant]
     Active Substance: LEVOFLOXACIN
     Dosage: 250 MILLIGRAM
  18. ENBREL [Suspect]
     Active Substance: ETANERCEPT
     Indication: RHEUMATOID ARTHRITIS
     Dosage: 50 MILLIGRAM, QWK
     Route: 065

REACTIONS (1)
  - Hospitalisation [Unknown]

NARRATIVE: CASE EVENT DATE: 20190415
